FAERS Safety Report 4943741-X (Version None)
Quarter: 2006Q1

REPORT INFORMATION
  Report Type: 
  Country: None (occurrence: None)
  Receive Date: 20060314
  Receipt Date: 20050609
  Transmission Date: 20060701
  Serious: Yes (Hospitalization)
  Sender: FDA-Public Use
  Company Number: US-MERCK-0506USA01556

PATIENT
  Age: 61 Year
  Sex: Female
  Weight: 100 kg

DRUGS (3)
  1. VIOXX [Suspect]
     Indication: ARTHRITIS
     Route: 048
     Dates: start: 20000510, end: 20040930
  2. PAXIL [Concomitant]
     Indication: DEPRESSION
     Route: 065
  3. PAXIL [Concomitant]
     Indication: ANXIETY
     Route: 065

REACTIONS (6)
  - ACUTE MYOCARDIAL INFARCTION [None]
  - ANXIETY [None]
  - DEPRESSION [None]
  - DIZZINESS [None]
  - GASTROINTESTINAL HAEMORRHAGE [None]
  - NAUSEA [None]
